FAERS Safety Report 9966329 (Version 2)
Quarter: 2014Q1

REPORT INFORMATION
  Report Type: Report from Study
  Country: US (occurrence: US)
  Receive Date: 20140305
  Receipt Date: 20140305
  Transmission Date: 20141002
  Serious: No
  Sender: FDA-Public Use
  Company Number: US-ABBVIE-09P-163-0572261-00

PATIENT
  Age: 35 Year
  Sex: Female

DRUGS (11)
  1. HUMIRA [Suspect]
     Indication: PSORIASIS
     Dosage: DAY 8
     Dates: start: 20090429
  2. HUMIRA [Suspect]
     Indication: CROHN^S DISEASE
     Dates: start: 20130726
  3. PREDNISONE [Concomitant]
     Indication: CROHN^S DISEASE
  4. LASIX [Concomitant]
     Indication: FLUID RETENTION
  5. LISINOPRIL [Concomitant]
     Indication: HYPERTENSION
  6. PROAIR [Concomitant]
     Indication: ASTHMA
     Dosage: HS
  7. SINGULAR [Concomitant]
     Indication: ASTHMA
     Dosage: HS
  8. XANAX [Concomitant]
     Indication: ANXIETY
     Dosage: AS NEEDED
  9. CLOBETASOL 0.05% [Concomitant]
     Indication: PSORIASIS
     Dosage: AS NEEDED
  10. TRIAMCINOLONE ACETONIDE [Concomitant]
     Indication: PSORIASIS
     Dosage: AS NEEDED
  11. FLONASE [Concomitant]
     Indication: HYPERSENSITIVITY
     Dosage: SPRAYS EACH NOSTRIL DAILY

REACTIONS (4)
  - Muscle spasms [Not Recovered/Not Resolved]
  - Nodule [Not Recovered/Not Resolved]
  - Injection site pain [Unknown]
  - Injection site pain [Not Recovered/Not Resolved]
